FAERS Safety Report 19592331 (Version 1)
Quarter: 2021Q3

REPORT INFORMATION
  Report Type: Other
  Country: CA (occurrence: CA)
  Receive Date: 20210722
  Receipt Date: 20210722
  Transmission Date: 20211014
  Serious: Yes (Other)
  Sender: FDA-Public Use
  Company Number: CA-CELLTRION INC.-2021CA009503

PATIENT

DRUGS (5)
  1. EPOETIN ALFA [Concomitant]
     Active Substance: ERYTHROPOIETIN
  2. RITUXIMAB (UNKNOWN) [Suspect]
     Active Substance: RITUXIMAB
     Dosage: 375.0 MG/M2, 1 EVERY 1 WEEKS
     Route: 042
  3. IBRUTINIB [Concomitant]
     Active Substance: IBRUTINIB
     Dosage: 280 MG
     Route: 065
  4. RITUXIMAB (UNKNOWN) [Suspect]
     Active Substance: RITUXIMAB
     Indication: COLD TYPE HAEMOLYTIC ANAEMIA
     Dosage: 610.0 MILLIGRAM, 1 EVERY 1 WEEKS
     Route: 042
  5. PREDNISONE. [Concomitant]
     Active Substance: PREDNISONE
     Dosage: 15.0 MILLIGRAM
     Route: 065

REACTIONS (5)
  - Paraproteinaemia [Not Recovered/Not Resolved]
  - Waldenstrom^s macroglobulinaemia [Not Recovered/Not Resolved]
  - Off label use [Unknown]
  - Autoimmune haemolytic anaemia [Not Recovered/Not Resolved]
  - B-cell lymphoma [Not Recovered/Not Resolved]
